FAERS Safety Report 6335764-3 (Version None)
Quarter: 2009Q3

REPORT INFORMATION
  Report Type: 
  Country: None (occurrence: None)
  Receive Date: 20090831
  Receipt Date: 20090821
  Transmission Date: 20100115
  Serious: Yes (Other)
  Sender: FDA-Public Use
  Company Number: JP-MERCK-0908USA00135M

PATIENT
  Age: 34 Year
  Sex: Female
  Weight: 50 kg

DRUGS (3)
  1. DECADRON [Suspect]
     Indication: FOETAL DISORDER
     Route: 048
     Dates: start: 20080806
  2. DECADRON [Suspect]
     Route: 048
     Dates: end: 20090113
  3. RITODRINE HYDROCHLORIDE [Concomitant]
     Indication: FOETAL HEART RATE DECREASED
     Route: 065
     Dates: start: 20080806, end: 20081020

REACTIONS (2)
  - DRUG EXPOSURE DURING PREGNANCY [None]
  - PREMATURE RUPTURE OF MEMBRANES [None]
